FAERS Safety Report 8858135 (Version 1)
Quarter: 2012Q4

REPORT INFORMATION
  Report Type: 
  Country: US (occurrence: US)
  Receive Date: 20121024
  Receipt Date: 20121024
  Transmission Date: 20130627
  Serious: No
  Sender: FDA-Public Use
  Company Number: US-AMGEN-USASP2011065533

PATIENT
  Age: 62 Year
  Sex: Male
  Weight: 99.77 kg

DRUGS (5)
  1. ENBREL [Suspect]
     Indication: PRODUCT USED FOR UNKNOWN INDICATION
     Dosage: 50 mg, 2 times/wk
     Route: 058
  2. ASA [Concomitant]
     Dosage: 81 mg, UNK
     Route: 048
  3. MULTIPLE VITAMINS [Concomitant]
     Dosage: UNK
     Route: 048
  4. LIPITOR [Concomitant]
     Dosage: 20 mg, UNK
     Route: 048
  5. BYSTOLIC [Concomitant]
     Dosage: 5 mg, UNK
     Route: 048

REACTIONS (1)
  - Hypoaesthesia [Recovering/Resolving]
